FAERS Safety Report 6310915-5 (Version None)
Quarter: 2009Q3

REPORT INFORMATION
  Report Type: 
  Country: None (occurrence: None)
  Receive Date: 20090812
  Receipt Date: 20090806
  Transmission Date: 20100115
  Serious: Yes (Life-Threatening)
  Sender: FDA-Public Use
  Company Number: 2009TJ0176

PATIENT
  Age: 28 Year
  Sex: Female

DRUGS (1)
  1. TWINJECT 0.3 [Suspect]
     Indication: HYPERSENSITIVITY
     Dosage: 0.3MG, AS NEEDED
     Dates: start: 20090701

REACTIONS (2)
  - MEDICAL DEVICE COMPLICATION [None]
  - PRODUCT QUALITY ISSUE [None]
